FAERS Safety Report 5100708-9 (Version None)
Quarter: 2006Q3

REPORT INFORMATION
  Report Type: 
  Country: None (occurrence: None)
  Receive Date: 20060906
  Receipt Date: 20060821
  Transmission Date: 20061208
  Serious: Yes (Life-Threatening)
  Sender: FDA-Public Use
  Company Number: S06-UKI-03399-01

PATIENT
  Age: 95 Year
  Sex: Female
  Weight: 80 kg

DRUGS (5)
  1. CITALOPRAM HYDROBROMIDE [Suspect]
     Dosage: 20 MG QD PO
     Route: 048
  2. FENTANYL [Concomitant]
  3. LEVOTHYROXINE SODIUM [Concomitant]
  4. OMEPRAZOLE [Concomitant]
  5. TEMAZEPAM [Concomitant]

REACTIONS (1)
  - BLOOD SODIUM DECREASED [None]
